FAERS Safety Report 9310210 (Version 1)
Quarter: 2013Q2

REPORT INFORMATION
  Report Type: Other
  Country: GB (occurrence: GB)
  Receive Date: 20130527
  Receipt Date: 20130527
  Transmission Date: 20140414
  Serious: Yes (Hospitalization)
  Sender: FDA-Public Use
  Company Number: GB-SUN PHARMACEUTICAL INDUSTRIES LTD-2013SUN00619

PATIENT
  Age: 47 Year
  Sex: Male

DRUGS (9)
  1. GEMCITABINE INJECTION [Suspect]
     Indication: PANCREATIC CARCINOMA
     Dosage: 2052 MG, CYCLICAL
     Route: 042
     Dates: start: 20120525
  2. IMM-101 [Suspect]
     Indication: PANCREATIC CARCINOMA
     Dosage: 1 MG, CYCLICAL
     Route: 023
     Dates: start: 20120525, end: 20120601
  3. BISACODYL [Concomitant]
     Indication: CONSTIPATION
     Dosage: 5 MG, UNK
     Route: 048
  4. BUSCOPAN [Concomitant]
     Indication: ABDOMINAL PAIN
     Dosage: 20 MG, BID
     Route: 048
     Dates: start: 20120516
  5. DOCUSATE [Concomitant]
     Indication: CONSTIPATION
     Dosage: 10 MG, BID
     Route: 048
     Dates: start: 201206
  6. METOCLOPRAMIDE [Concomitant]
     Indication: NAUSEA
     Dosage: 10 MG, TID
     Route: 048
  7. MST CONTINUS [Concomitant]
     Indication: PAIN
     Dosage: 30 MG, BID
     Route: 048
  8. OMEPRAZOLE [Concomitant]
     Indication: DUODENOGASTRIC REFLUX
     Dosage: 20 MG, BID
     Route: 048
  9. ORAMORPH [Concomitant]
     Indication: PAIN
     Dosage: 5 ML, 1 / 1 AS NECESSARY
     Route: 048

REACTIONS (2)
  - Cerebellar infarction [Recovered/Resolved]
  - Urinary tract infection [Recovered/Resolved]
